FAERS Safety Report 14439383 (Version 3)
Quarter: 2018Q1

REPORT INFORMATION
  Report Type: Spontaneous
  Country: US (occurrence: US)
  Receive Date: 20180125
  Receipt Date: 20180325
  Transmission Date: 20180509
  Serious: Yes (Hospitalization)
  Sender: FDA-Public Use
  Company Number: US-JNJFOC-20180121198

PATIENT
  Age: 53 Year
  Sex: Female

DRUGS (1)
  1. XARELTO [Suspect]
     Active Substance: RIVAROXABAN
     Indication: DEEP VEIN THROMBOSIS
     Route: 048
     Dates: start: 20131010, end: 20160504

REACTIONS (1)
  - Gastrointestinal vascular malformation haemorrhagic [Recovered/Resolved]

NARRATIVE: CASE EVENT DATE: 20160113
